FAERS Safety Report 10913298 (Version 1)
Quarter: 2015Q1

REPORT INFORMATION
  Report Type: Spontaneous
  Country: US (occurrence: None)
  Receive Date: 20150310
  Receipt Date: 20150310
  Transmission Date: 20150721
  Serious: Yes (Hospitalization)
  Sender: FDA-Public Use
  Company Number: None

PATIENT
  Age: 74 Year
  Sex: Male
  Weight: 69.8 kg

DRUGS (5)
  1. TAXOL [Concomitant]
     Active Substance: PACLITAXEL
  2. TAXOL [Suspect]
     Active Substance: PACLITAXEL
     Route: 042
  3. 5FU [Concomitant]
     Active Substance: FLUOROURACIL
  4. HYDREA [Concomitant]
     Active Substance: HYDROXYUREA
  5. 5FU [Suspect]
     Active Substance: FLUOROURACIL
     Route: 042

REACTIONS (1)
  - Pain [None]

NARRATIVE: CASE EVENT DATE: 20150302
